FAERS Safety Report 14205408 (Version 6)
Quarter: 2018Q1

REPORT INFORMATION
  Report Type: Spontaneous
  Country: GB (occurrence: GB)
  Receive Date: 20171120
  Receipt Date: 20180209
  Transmission Date: 20180508
  Serious: Yes (Disabling, Congenital Anomaly, Other)
  Sender: FDA-Public Use
  Company Number: GB-ABBVIE-17P-167-2168259-00

PATIENT
  Sex: Male

DRUGS (1)
  1. EPILIM [Suspect]
     Active Substance: VALPROATE SODIUM
     Indication: MATERNAL EXPOSURE TIMING UNSPECIFIED
     Route: 064

REACTIONS (5)
  - Loss of personal independence in daily activities [Unknown]
  - Foetal exposure during pregnancy [Unknown]
  - Learning disorder [Unknown]
  - Autism spectrum disorder [Unknown]
  - Congenital anomaly [Unknown]
